FAERS Safety Report 6498748-0 (Version None)
Quarter: 2009Q4

REPORT INFORMATION
  Report Type: 
  Country: None (occurrence: None)
  Receive Date: 20091215
  Receipt Date: 20091203
  Transmission Date: 20100525
  Serious: Yes (Hospitalization)
  Sender: FDA-Public Use
  Company Number: PHHY2009JP51381

PATIENT
  Age: 88 Year
  Sex: Male

DRUGS (3)
  1. FAMVIR [Suspect]
     Indication: HERPES ZOSTER
     Dosage: 1500 MG PER DAY
     Route: 048
     Dates: start: 20091104, end: 20091105
  2. TAMSULOSIN HYDROCHLORIDE [Concomitant]
     Dosage: UNK
     Dates: start: 20000101
  3. PIPSISEWA EXTRACT-JAPANSE ASPEN EXTRACT COMBINED DRUG [Concomitant]
     Dosage: UNK

REACTIONS (6)
  - CHILLS [None]
  - DIZZINESS [None]
  - HAEMATURIA [None]
  - RENAL IMPAIRMENT [None]
  - SYSTEMIC INFLAMMATORY RESPONSE SYNDROME [None]
  - URINARY TRACT INFECTION [None]
